FAERS Safety Report 8834692 (Version 1)
Quarter: 2012Q4

REPORT INFORMATION
  Report Type: Spontaneous
  Country: US (occurrence: None)
  Receive Date: 20120925
  Receipt Date: 20120925
  Transmission Date: 20130627
  Serious: Yes (Hospitalization)
  Sender: FDA-Public Use
  Company Number: 2012PROUSA01781

PATIENT
  Age: 84 Year
  Sex: Male
  Weight: 83.9 kg

DRUGS (5)
  1. PROVENGE [Suspect]
     Indication: PROSTATE CANCER METASTATIC
     Dosage: single
     Dates: start: 20120709, end: 20120709
  2. PROVENGE [Suspect]
     Indication: PROSTATE CANCER METASTATIC
     Dosage: single
     Dates: start: 20120723, end: 20120723
  3. PROVENGE [Suspect]
     Indication: PROSTATE CANCER METASTATIC
     Dosage: single
     Dates: start: 20120806, end: 20120806
  4. ZOMETA (ZOLEDRONIC ACID) [Concomitant]
  5. FIRMAGON (DEGARELIX) [Concomitant]

REACTIONS (7)
  - Sepsis syndrome [None]
  - Pyelonephritis [None]
  - Urinary tract infection [None]
  - Wheezing [None]
  - Bladder spasm [None]
  - Musculoskeletal pain [None]
  - Infusion related reaction [None]
